FAERS Safety Report 6357837-1 (Version None)
Quarter: 2009Q3

REPORT INFORMATION
  Report Type: 
  Country: None (occurrence: None)
  Receive Date: 20090916
  Receipt Date: 20090909
  Transmission Date: 20100115
  Serious: Yes (Death, Other)
  Sender: FDA-Public Use
  Company Number: PHHY2009US38892

PATIENT
  Age: 20 Month
  Sex: Female

DRUGS (17)
  1. PROLEUKIN [Suspect]
     Indication: MALIGNANT MELANOMA
     Dosage: 72000 IU/KG, Q8H
     Route: 042
  2. PROLEUKIN [Suspect]
     Dosage: 144000 IU/KG, Q8H
     Route: 042
  3. PROLEUKIN [Suspect]
     Dosage: 288000 IU/KG, Q8H
     Route: 042
  4. PROLEUKIN [Suspect]
     Dosage: 576000 IU/KG, Q8H
     Route: 042
  5. PROLEUKIN [Suspect]
     Dosage: 720000 IU/KG, Q8H
     Route: 042
  6. ACETAMINOPHEN [Concomitant]
     Dosage: 10-15 MG/KG Q 4-8 H
     Route: 048
  7. SODIUM CHLORIDE [Concomitant]
  8. POTASSIUM CHLORIDE [Concomitant]
  9. MAGNESIUM SULFATE [Concomitant]
  10. IBUPROFEN [Concomitant]
     Dosage: 10 MG/KG Q6 - 8 H
     Route: 048
  11. RANITIDINE [Concomitant]
     Dosage: 1 MG/KG Q 6-8 H
     Route: 042
  12. DIPHENHYDRAMINE HCL [Concomitant]
     Dosage: 0.5-1 MG/KG IV/PO Q6-8H
  13. NAFCILLIN [Concomitant]
     Dosage: 50 MG/KG, Q6H
     Route: 042
  14. CEFTAZIDIME [Concomitant]
  15. VANCOMYCIN [Concomitant]
  16. FUROSEMIDE [Concomitant]
  17. ALBUMIN NOS [Concomitant]

REACTIONS (16)
  - ANAEMIA [None]
  - CHEST PAIN [None]
  - CHILLS [None]
  - DIARRHOEA [None]
  - FLUID OVERLOAD [None]
  - HYPOALBUMINAEMIA [None]
  - HYPOTENSION [None]
  - LETHARGY [None]
  - OEDEMA [None]
  - PLEURAL EFFUSION [None]
  - PULMONARY OEDEMA [None]
  - PYREXIA [None]
  - RESPIRATORY DISTRESS [None]
  - TACHYPNOEA [None]
  - URINE OUTPUT DECREASED [None]
  - VOMITING [None]
